FAERS Safety Report 13336462 (Version 1)
Quarter: 2017Q1

REPORT INFORMATION
  Report Type: Report from Study
  Country: US (occurrence: US)
  Receive Date: 20170314
  Receipt Date: 20170314
  Transmission Date: 20170428
  Serious: Yes (Other)
  Sender: FDA-Public Use
  Company Number: US-JAZZ-2016-US-024692

PATIENT
  Age: 57 Year
  Sex: Female

DRUGS (59)
  1. AFRIN [Concomitant]
     Active Substance: OXYMETAZOLINE
     Indication: SINUS DISORDER
     Dosage: UNK, PRN
  2. RESTASIS [Concomitant]
     Active Substance: CYCLOSPORINE
     Indication: DRY EYE
  3. GRALISE [Concomitant]
     Active Substance: GABAPENTIN
  4. PRIVIGEN [Concomitant]
     Active Substance: HUMAN IMMUNOGLOBULIN G
     Indication: CHRONIC INFLAMMATORY DEMYELINATING POLYRADICULONEUROPATHY
  5. ZINC OXIDE. [Concomitant]
     Active Substance: ZINC OXIDE
  6. SINGULAIR [Concomitant]
     Active Substance: MONTELUKAST SODIUM
     Indication: SINUS DISORDER
  7. PEPTO-BISMOL [Concomitant]
     Active Substance: BISMUTH SUBSALICYLATE
     Indication: FUNCTIONAL GASTROINTESTINAL DISORDER
     Dosage: UNK, PRN
  8. PRIVIGEN [Concomitant]
     Active Substance: HUMAN IMMUNOGLOBULIN G
     Indication: SJOGREN^S SYNDROME
     Dosage: EVERY 3 WEEKS
  9. GABAPENTIN. [Concomitant]
     Active Substance: GABAPENTIN
     Indication: CHRONIC INFLAMMATORY DEMYELINATING POLYRADICULONEUROPATHY
  10. XYREM [Suspect]
     Active Substance: SODIUM OXYBATE
     Dosage: 3 G, BID
     Route: 048
     Dates: start: 201612, end: 20161227
  11. FAMOTIDINE. [Concomitant]
     Active Substance: FAMOTIDINE
     Indication: DYSPEPSIA
  12. VIIBRYD [Concomitant]
     Active Substance: VILAZODONE HYDROCHLORIDE
  13. CLONAZEPAM. [Concomitant]
     Active Substance: CLONAZEPAM
     Indication: PRODUCT USED FOR UNKNOWN INDICATION
     Dosage: UNK, PRN
  14. ZOCOR [Concomitant]
     Active Substance: SIMVASTATIN
     Indication: BLOOD CHOLESTEROL INCREASED
  15. FISH OIL [Concomitant]
     Active Substance: FISH OIL
     Indication: PRODUCT USED FOR UNKNOWN INDICATION
  16. ALBUTEROL. [Concomitant]
     Active Substance: ALBUTEROL
     Indication: SINUS DISORDER
     Dosage: UNK, PRN
  17. IMODIUM A-D [Concomitant]
     Active Substance: LOPERAMIDE HYDROCHLORIDE
     Indication: DIARRHOEA
     Dosage: UNK, PRN
  18. METAXALONE. [Concomitant]
     Active Substance: METAXALONE
  19. SOLU-MEDROL [Concomitant]
     Active Substance: METHYLPREDNISOLONE SODIUM SUCCINATE
     Indication: SJOGREN^S SYNDROME
  20. VALTREX [Suspect]
     Active Substance: VALACYCLOVIR HYDROCHLORIDE
     Indication: PRODUCT USED FOR UNKNOWN INDICATION
  21. CYCLOBENZAPRINE [Concomitant]
     Active Substance: CYCLOBENZAPRINE
     Indication: UNEVALUABLE EVENT
     Dosage: UNK, PRN
  22. BENTYL [Concomitant]
     Active Substance: DICYCLOMINE HYDROCHLORIDE
  23. DICYCLOMINE                        /00068601/ [Concomitant]
     Active Substance: DICYCLOMINE HYDROCHLORIDE
  24. FERROUS SULFATE. [Concomitant]
     Active Substance: FERROUS SULFATE
  25. MICROZIDE [Concomitant]
     Active Substance: HYDROCHLOROTHIAZIDE
     Indication: OEDEMA
  26. SALINE [Concomitant]
     Active Substance: SODIUM CHLORIDE
     Indication: PRODUCT USED FOR UNKNOWN INDICATION
  27. TETRAHYDROZOLINE [Concomitant]
     Active Substance: TETRAHYDROZOLINE
  28. HEPARIN FLUSH [Concomitant]
     Active Substance: HEPARIN SODIUM
     Indication: CATHETER MANAGEMENT
  29. HYDROCODONE/ACETAMINOPHEN [Concomitant]
     Active Substance: ACETAMINOPHEN\HYDROCODONE
     Indication: CHRONIC INFLAMMATORY DEMYELINATING POLYRADICULONEUROPATHY
  30. PILOCARPINE HCL [Concomitant]
     Active Substance: PILOCARPINE HYDROCHLORIDE
     Indication: SJOGREN^S SYNDROME
  31. PLAQUENIL [Concomitant]
     Active Substance: HYDROXYCHLOROQUINE SULFATE
     Indication: RHEUMATOID ARTHRITIS
  32. AZELASTINE [Concomitant]
     Active Substance: AZELASTINE
  33. ACETAMINOPHEN W/HYDROCODONE [Concomitant]
     Active Substance: ACETAMINOPHEN\HYDROCODONE
  34. TRAZODONE                          /00447702/ [Concomitant]
     Active Substance: TRAZODONE HYDROCHLORIDE
  35. ZINC CHELATE [Concomitant]
  36. HYDROCODONE/ACETAMINOPHEN [Concomitant]
     Active Substance: ACETAMINOPHEN\HYDROCODONE
     Indication: HEADACHE
     Dosage: UNK, PRN
  37. SINGULAIR [Concomitant]
     Active Substance: MONTELUKAST SODIUM
     Indication: SJOGREN^S SYNDROME
  38. DYMISTA [Concomitant]
     Active Substance: AZELASTINE HYDROCHLORIDE\FLUTICASONE PROPIONATE
     Indication: HYPERSENSITIVITY
  39. SYSTANE (HYPROMELLOSE 2910 (4000 MPA.S)) [Concomitant]
     Active Substance: HYPROMELLOSE 2910 (4000 MPA.S)
  40. MODAFINIL. [Concomitant]
     Active Substance: MODAFINIL
  41. BONIVA [Concomitant]
     Active Substance: IBANDRONATE SODIUM
  42. CALCIUM + D3 [Concomitant]
     Active Substance: CALCIUM\CHOLECALCIFEROL
     Indication: PRODUCT USED FOR UNKNOWN INDICATION
  43. MONTELUKAST [Concomitant]
     Active Substance: MONTELUKAST SODIUM
     Indication: SJOGREN^S SYNDROME
  44. SALINE [Concomitant]
     Active Substance: SODIUM CHLORIDE
     Indication: CATHETER MANAGEMENT
  45. ZINC. [Concomitant]
     Active Substance: ZINC
     Indication: SUPPLEMENTATION THERAPY
  46. LORAZEPAM. [Concomitant]
     Active Substance: LORAZEPAM
     Indication: FEAR OF INJECTION
     Dosage: UNK, PRN
  47. BUTALBITAL, ACETAMINOPHEN, AND CAFFEINE [Concomitant]
     Active Substance: ACETAMINOPHEN\BUTALBITAL\CAFFEINE
  48. SUPER B COMPLEX WITH C [Concomitant]
     Indication: VITAMIN B COMPLEX DEFICIENCY
  49. REQUIP [Concomitant]
     Active Substance: ROPINIROLE HYDROCHLORIDE
     Indication: RESTLESSNESS
  50. ATIVAN [Concomitant]
     Active Substance: LORAZEPAM
  51. VITAMIN D3 [Concomitant]
     Active Substance: CHOLECALCIFEROL
  52. SOLU-MEDROL [Concomitant]
     Active Substance: METHYLPREDNISOLONE SODIUM SUCCINATE
     Indication: CHRONIC INFLAMMATORY DEMYELINATING POLYRADICULONEUROPATHY
  53. XYREM [Suspect]
     Active Substance: SODIUM OXYBATE
     Indication: SLEEP DISORDER
     Dosage: 2.25 G, BID
     Route: 048
     Dates: start: 20161215, end: 201612
  54. RETAINE FLAX [Concomitant]
     Indication: DRY EYE
     Dosage: UNK, PRN
  55. EMLA [Concomitant]
     Active Substance: LIDOCAINE\PRILOCAINE
     Indication: HYPOAESTHESIA
  56. HEPARIN [Concomitant]
     Active Substance: HEPARIN SODIUM
  57. METHYLPREDNISOLONE. [Concomitant]
     Active Substance: METHYLPREDNISOLONE
     Indication: SJOGREN^S SYNDROME
  58. METHYLPREDNISOLONE. [Concomitant]
     Active Substance: METHYLPREDNISOLONE
     Indication: CHRONIC INFLAMMATORY DEMYELINATING POLYRADICULONEUROPATHY
  59. MONTELUKAST [Concomitant]
     Active Substance: MONTELUKAST SODIUM
     Indication: SINUS DISORDER

REACTIONS (25)
  - Delayed recovery from anaesthesia [Unknown]
  - Balance disorder [Unknown]
  - Weight decreased [Not Recovered/Not Resolved]
  - Throat irritation [Recovered/Resolved]
  - Immune system disorder [Unknown]
  - Dry eye [Recovering/Resolving]
  - Urine odour abnormal [Recovered/Resolved]
  - Nasopharyngitis [Recovered/Resolved]
  - Decreased appetite [Not Recovered/Not Resolved]
  - Dyspepsia [Not Recovered/Not Resolved]
  - Hyperhidrosis [Not Recovered/Not Resolved]
  - Tenderness [Unknown]
  - Thirst [Recovering/Resolving]
  - Dysgeusia [Not Recovered/Not Resolved]
  - Cough [Recovered/Resolved]
  - Diarrhoea [Recovering/Resolving]
  - Dry mouth [Not Recovered/Not Resolved]
  - Tremor [Unknown]
  - Abdominal pain upper [Not Recovered/Not Resolved]
  - Skin odour abnormal [Recovered/Resolved]
  - Incorrect dose administered [Unknown]
  - Viral infection [Unknown]
  - Headache [Not Recovered/Not Resolved]
  - Urinary incontinence [Recovering/Resolving]
  - Dizziness [Unknown]

NARRATIVE: CASE EVENT DATE: 201612
